FAERS Safety Report 19731749 (Version 1)
Quarter: 2021Q3

REPORT INFORMATION
  Report Type: Spontaneous
  Country: US (occurrence: US)
  Receive Date: 20210820
  Receipt Date: 20210820
  Transmission Date: 20211014
  Serious: Yes (Hospitalization)
  Sender: FDA-Public Use
  Company Number: None

PATIENT
  Age: 26 Year
  Sex: Male
  Weight: 105 kg

DRUGS (6)
  1. CYTARABINE. [Concomitant]
     Active Substance: CYTARABINE
     Dates: end: 20210729
  2. VINCRISTINE SULFATE. [Concomitant]
     Active Substance: VINCRISTINE SULFATE
     Dates: end: 20210730
  3. DAUNORUBICIN [Concomitant]
     Active Substance: DAUNORUBICIN
     Dates: end: 20210813
  4. ONCASPAR [Suspect]
     Active Substance: PEGASPARGASE
     Dates: end: 20210802
  5. METHOTREXATE. [Concomitant]
     Active Substance: METHOTREXATE
     Dates: end: 20210806
  6. DEXAMETHASONE. [Concomitant]
     Active Substance: DEXAMETHASONE
     Dates: end: 20210814

REACTIONS (6)
  - Unresponsive to stimuli [None]
  - Headache [None]
  - Confusional state [None]
  - Visual impairment [None]
  - Tremor [None]
  - Nervous system disorder [None]

NARRATIVE: CASE EVENT DATE: 20210814
